FAERS Safety Report 13868177 (Version 1)
Quarter: 2017Q3

REPORT INFORMATION
  Report Type: Spontaneous
  Country: GB (occurrence: GB)
  Receive Date: 20170814
  Receipt Date: 20170814
  Transmission Date: 20171127
  Serious: Yes (Hospitalization)
  Sender: FDA-Public Use
  Company Number: GB-ABBVIE-17K-167-2066639-00

PATIENT
  Sex: Female

DRUGS (14)
  1. HUMIRA [Suspect]
     Active Substance: ADALIMUMAB
     Dosage: INDUCTION DOSE
     Route: 058
  2. ALLOPURINOL. [Concomitant]
     Active Substance: ALLOPURINOL
  3. AZATHIOPRINE. [Concomitant]
     Active Substance: AZATHIOPRINE
     Indication: PRODUCT USED FOR UNKNOWN INDICATION
     Dates: start: 201111
  4. BUDESONIDE. [Concomitant]
     Active Substance: BUDESONIDE
     Indication: PRODUCT USED FOR UNKNOWN INDICATION
     Dosage: REDUCING COURSE
     Dates: end: 201111
  5. ALLOPURINOL. [Concomitant]
     Active Substance: ALLOPURINOL
     Indication: PRODUCT USED FOR UNKNOWN INDICATION
  6. LANSOPRAZOLE. [Concomitant]
     Active Substance: LANSOPRAZOLE
     Indication: PRODUCT USED FOR UNKNOWN INDICATION
  7. BUDESONIDE. [Concomitant]
     Active Substance: BUDESONIDE
     Dosage: REDUCING COURSE
     Dates: start: 201212
  8. HUMIRA [Suspect]
     Active Substance: ADALIMUMAB
     Indication: PRODUCT USED FOR UNKNOWN INDICATION
     Dosage: INDUCTION DOSE
     Route: 058
     Dates: start: 201302, end: 201302
  9. HUMIRA [Suspect]
     Active Substance: ADALIMUMAB
     Route: 058
  10. BUDESONIDE. [Concomitant]
     Active Substance: BUDESONIDE
     Dates: start: 201304
  11. AZATHIOPRINE. [Concomitant]
     Active Substance: AZATHIOPRINE
  12. AZATHIOPRINE. [Concomitant]
     Active Substance: AZATHIOPRINE
  13. AZATHIOPRINE. [Concomitant]
     Active Substance: AZATHIOPRINE
  14. BUDESONIDE. [Concomitant]
     Active Substance: BUDESONIDE
     Dosage: REDUCING COURSE
     Dates: start: 201111

REACTIONS (15)
  - Condition aggravated [Unknown]
  - Abdominal pain [Unknown]
  - Nausea [Unknown]
  - Constipation [Unknown]
  - Water pollution [Recovered/Resolved]
  - Abdominal pain lower [Unknown]
  - Condition aggravated [Unknown]
  - Condition aggravated [Unknown]
  - Drug ineffective [Unknown]
  - Biopsy colon abnormal [Unknown]
  - Lymphoid tissue hyperplasia [Unknown]
  - Enteritis [Recovering/Resolving]
  - Intestinal scarring [Unknown]
  - Vomiting [Recovered/Resolved]
  - Benign gastrointestinal neoplasm [Unknown]

NARRATIVE: CASE EVENT DATE: 201304
